FAERS Safety Report 5589710-0 (Version None)
Quarter: 2008Q1

REPORT INFORMATION
  Report Type: 
  Country: None (occurrence: None)
  Receive Date: 20080114
  Receipt Date: 20080107
  Transmission Date: 20080703
  Serious: Yes (Life-Threatening)
  Sender: FDA-Public Use
  Company Number: B0500652A

PATIENT
  Age: 90 Year
  Sex: Female
  Weight: 60 kg

DRUGS (5)
  1. ARIXTRA [Suspect]
     Indication: DRUG USE FOR UNKNOWN INDICATION
     Route: 058
     Dates: start: 20060101, end: 20071129
  2. DEROXAT [Concomitant]
     Indication: DRUG USE FOR UNKNOWN INDICATION
     Dosage: .5UNIT AT NIGHT
     Route: 048
  3. NITRODERM [Concomitant]
     Dosage: 10MG PER DAY
     Route: 050
  4. LERCAN [Concomitant]
     Dosage: 10MG PER DAY
  5. RIVOTRIL [Concomitant]
     Dosage: 2.5MG AT NIGHT

REACTIONS (3)
  - CEREBRAL HAEMATOMA [None]
  - COMA [None]
  - HEMIPLEGIA [None]
